FAERS Safety Report 5738080-3 (Version None)
Quarter: 2008Q2

REPORT INFORMATION
  Report Type: 
  Country: None (occurrence: None)
  Receive Date: 20080514
  Receipt Date: 20080512
  Transmission Date: 20081010
  Serious: Yes (Hospitalization, Other)
  Sender: FDA-Public Use
  Company Number: US-ELI_LILLY_AND_COMPANY-US200805002225

PATIENT
  Sex: Male
  Weight: 99.773 kg

DRUGS (12)
  1. BYETTA [Suspect]
     Indication: TYPE 2 DIABETES MELLITUS
     Dosage: 5 UG, 2/D
     Route: 058
     Dates: start: 20060101, end: 20060101
  2. BYETTA [Suspect]
     Dosage: 10 UG, 2/D
     Route: 058
     Dates: start: 20060101, end: 20080506
  3. BYETTA [Suspect]
     Dosage: 10 UG, 2/D
     Route: 058
     Dates: start: 20080510
  4. ASPIRIN [Concomitant]
     Dosage: 81 MG, DAILY (1/D)
     Route: 048
     Dates: end: 20080201
  5. ASPIRIN [Concomitant]
     Dosage: 81 MG, DAILY (1/D)
     Route: 048
     Dates: start: 20080101
  6. LEVOTHROID [Concomitant]
     Indication: THYROID DISORDER
     Dosage: UNK, UNKNOWN
     Dates: end: 20080201
  7. LEVOTHROID [Concomitant]
     Dates: start: 20080101
  8. LISINOPRIL [Concomitant]
     Indication: CARDIAC DISORDER
     Dosage: UNK, DAILY (1/D)
     Dates: start: 20061201, end: 20080201
  9. LISINOPRIL [Concomitant]
     Dosage: UNK, DAILY (1/D)
     Dates: start: 20080101
  10. FLOMAX [Concomitant]
     Dosage: UNK, UNKNOWN
     Dates: end: 20080201
  11. FLOMAX [Concomitant]
     Dosage: UNK, UNKNOWN
     Dates: start: 20080101
  12. MULTI-VITAMIN [Concomitant]
     Dosage: UNK, UNKNOWN

REACTIONS (13)
  - ANAEMIA [None]
  - ARTHRALGIA [None]
  - ASTHMA [None]
  - ATRIAL FIBRILLATION [None]
  - BLOOD PRESSURE DECREASED [None]
  - CORONARY ARTERY OCCLUSION [None]
  - DIZZINESS [None]
  - DYSPNOEA [None]
  - MUSCULOSKELETAL PAIN [None]
  - PALPITATIONS [None]
  - PLEURAL EFFUSION [None]
  - POLYMYALGIA RHEUMATICA [None]
  - PRESYNCOPE [None]
